FAERS Safety Report 7473087-X (Version None)
Quarter: 2011Q2

REPORT INFORMATION
  Report Type: 
  Country: None (occurrence: None)
  Receive Date: 20110511
  Receipt Date: 20110506
  Transmission Date: 20111010
  Serious: Yes (Disabling)
  Sender: FDA-Public Use
  Company Number: US-ROCHE-775698

PATIENT
  Sex: Female

DRUGS (1)
  1. XENICAL [Suspect]
     Indication: WEIGHT CONTROL
     Route: 065
     Dates: end: 20050101

REACTIONS (1)
  - CEREBROVASCULAR ACCIDENT [None]
